FAERS Safety Report 23111744 (Version 2)
Quarter: 2024Q1

REPORT INFORMATION
  Report Type: Spontaneous
  Country: US (occurrence: US)
  Receive Date: 20231026
  Receipt Date: 20240125
  Transmission Date: 20240410
  Serious: Yes (Hospitalization, Other)
  Sender: FDA-Public Use
  Company Number: US-BRISTOL-MYERS SQUIBB COMPANY-2023-151734

PATIENT
  Age: 37 Year
  Sex: Female
  Weight: 63.1 kg

DRUGS (11)
  1. ABRAXANE [Suspect]
     Active Substance: PACLITAXEL
     Indication: Breast cancer metastatic
     Route: 042
     Dates: start: 20230806, end: 20230819
  2. ELACESTRANT [Suspect]
     Active Substance: ELACESTRANT
     Indication: Breast cancer metastatic
     Dosage: BATCH NO. PRIMARY PACKAGED BULK DRUG PRODUCT: M11564?BATCH NO. OF IMP: S1322101 (258 MG, QD)?A0048,
     Route: 048
     Dates: start: 20230706, end: 20230731
  3. PALBOCICLIB [Suspect]
     Active Substance: PALBOCICLIB
     Indication: Breast cancer metastatic
     Dosage: L003; GC1705; S2422111, K007; GH4931; S2323011
     Route: 048
     Dates: start: 20230706, end: 20230719
  4. ZOMETA [Concomitant]
     Active Substance: ZOLEDRONIC ACID
     Indication: Osteopenia
     Dosage: AS NEEDED 4MG/5ML
     Route: 058
     Dates: start: 20210916
  5. CALCIUM CITRATE;VITAMIN D NOS [Concomitant]
     Indication: Prophylaxis
     Dosage: AS NEEDED 200IU
     Route: 048
     Dates: start: 20220301
  6. LIDOCAINE;NIFEDIPINE [Concomitant]
     Indication: Anal fissure
     Dosage: 0.3/0.4% (3 IN 1 D)
     Route: 061
     Dates: start: 20230602, end: 20230720
  7. ROXICODONE [Concomitant]
     Active Substance: OXYCODONE HYDROCHLORIDE
     Indication: Bone pain
     Dosage: AS NEEDED/5MG
     Route: 048
     Dates: start: 20230612
  8. VALTREX [Concomitant]
     Active Substance: VALACYCLOVIR HYDROCHLORIDE
     Indication: Herpes simplex
     Route: 048
     Dates: start: 20230630, end: 20230713
  9. TEMOVATE [Concomitant]
     Active Substance: CLOBETASOL PROPIONATE
     Indication: Eczema
     Dosage: AS NEEDED
     Route: 061
     Dates: start: 20230620, end: 20230801
  10. OXYCODONE HYDROCHLORIDE [Concomitant]
     Active Substance: OXYCODONE HYDROCHLORIDE
     Indication: Product used for unknown indication
  11. MORPHINE SULFATE [Concomitant]
     Active Substance: MORPHINE SULFATE
     Indication: Product used for unknown indication

REACTIONS (4)
  - Thrombocytopenia [Recovered/Resolved]
  - Oxygen saturation decreased [Unknown]
  - Cough [Unknown]
  - Lung opacity [Unknown]

NARRATIVE: CASE EVENT DATE: 20230801
